FAERS Safety Report 17797715 (Version 2)
Quarter: 2020Q2

REPORT INFORMATION
  Report Type: Spontaneous
  Country: TR (occurrence: TR)
  Receive Date: 20200518
  Receipt Date: 20200528
  Transmission Date: 20200714
  Serious: Yes (Other)
  Sender: FDA-Public Use
  Company Number: NVSC2020TR133483

PATIENT
  Age: 50 Year
  Sex: Female

DRUGS (2)
  1. CARBOPLATIN. [Suspect]
     Active Substance: CARBOPLATIN
     Indication: PRODUCT USED FOR UNKNOWN INDICATION
     Dosage: 450 MG (PERFUSION FOR 1 HOUR AT 42 CENTIGRADE DEGREES)
     Route: 065
  2. MITOMYCIN. [Suspect]
     Active Substance: MITOMYCIN
     Indication: PRODUCT USED FOR UNKNOWN INDICATION
     Dosage: 20 MG (PERFUSION)
     Route: 065

REACTIONS (1)
  - Skin necrosis [Recovered/Resolved]
